FAERS Safety Report 8470436-0 (Version None)
Quarter: 2012Q2

REPORT INFORMATION
  Report Type: 
  Country: None (occurrence: None)
  Receive Date: 20120627
  Receipt Date: 20120619
  Transmission Date: 20120825
  Serious: Yes (Hospitalization)
  Sender: FDA-Public Use
  Company Number: US-US-EMD SERONO, INC.-7131967

PATIENT
  Sex: Female

DRUGS (3)
  1. CYMBALTA [Concomitant]
     Indication: PRODUCT USED FOR UNKNOWN INDICATION
  2. CYMBALTA [Concomitant]
  3. REBIF [Suspect]
     Indication: MULTIPLE SCLEROSIS
     Route: 058
     Dates: start: 20081024

REACTIONS (5)
  - BLOOD PRESSURE DECREASED [None]
  - MULTIPLE SCLEROSIS RELAPSE [None]
  - FALL [None]
  - LOSS OF CONSCIOUSNESS [None]
  - BLOOD GLUCOSE ABNORMAL [None]
